FAERS Safety Report 9097639 (Version 2)
Quarter: 2013Q1

REPORT INFORMATION
  Report Type: Spontaneous
  Country: DE (occurrence: DE)
  Receive Date: 20130212
  Receipt Date: 20130218
  Transmission Date: 20140127
  Serious: Yes (Death)
  Sender: FDA-Public Use
  Company Number: DE-ROCHE-GNE251704

PATIENT
  Age: 64 Year
  Sex: Female

DRUGS (3)
  1. LUCENTIS [Suspect]
     Indication: PRODUCT USED FOR UNKNOWN INDICATION
     Dosage: UNK, UNKNOWN
     Route: 050
     Dates: start: 20070824
  2. LUCENTIS [Suspect]
     Route: 065
     Dates: start: 20070922, end: 20070922
  3. LUCENTIS [Suspect]
     Route: 065
     Dates: start: 20071019, end: 20071019

REACTIONS (1)
  - Death [Fatal]
